FAERS Safety Report 6127273-1 (Version None)
Quarter: 2009Q1

REPORT INFORMATION
  Report Type: 
  Country: None (occurrence: None)
  Receive Date: 20090319
  Receipt Date: 20090305
  Transmission Date: 20090719
  Serious: Yes (Hospitalization)
  Sender: FDA-Public Use
  Company Number: 02100-JPN-06-0508

PATIENT
  Age: 44 Year
  Sex: Male

DRUGS (5)
  1. PLAVIX [Suspect]
     Indication: CEREBRAL INFARCTION
     Dosage: 75 MG, DAILY DOSE ORAL
     Route: 048
     Dates: start: 20060329, end: 20061020
  2. ATORVASTATIN CALCIUM [Concomitant]
  3. ASPIRIN [Concomitant]
  4. FOLIC ACID (FOLIC ACID) UNKNOWN [Concomitant]
  5. CILAZAPRIL (CILAZAPRIL) UNKNOWN [Concomitant]

REACTIONS (1)
  - CEREBRAL ARTERY STENOSIS [None]
